FAERS Safety Report 11528738 (Version 1)
Quarter: 2015Q3

REPORT INFORMATION
  Report Type: Spontaneous
  Country: US (occurrence: None)
  Receive Date: 20150918
  Receipt Date: 20150918
  Transmission Date: 20151125
  Serious: No
  Sender: FDA-Public Use
  Company Number: None

PATIENT
  Age: 70 Year
  Sex: Female
  Weight: 63.5 kg

DRUGS (6)
  1. FOLIC ACID. [Concomitant]
     Active Substance: FOLIC ACID
  2. SYNTHROID [Concomitant]
     Active Substance: LEVOTHYROXINE SODIUM
  3. BIOTIN [Concomitant]
     Active Substance: BIOTIN
  4. VIVELLE [Concomitant]
     Active Substance: ESTRADIOL
  5. D3 [Concomitant]
     Active Substance: 25-HYDROXYCHOLECALCIFEROL, 5-TRANS-
  6. ACYCLOVIR 400 MG [Suspect]
     Active Substance: ACYCLOVIR
     Indication: ANTIVIRAL PROPHYLAXIS
     Route: 048
     Dates: start: 20150827, end: 20150902

REACTIONS (2)
  - Pruritus generalised [None]
  - Pain [None]

NARRATIVE: CASE EVENT DATE: 20150902
